FAERS Safety Report 24888937 (Version 2)
Quarter: 2025Q1

REPORT INFORMATION
  Report Type: Spontaneous
  Country: US (occurrence: US)
  Receive Date: 20250127
  Receipt Date: 20250204
  Transmission Date: 20250408
  Serious: Yes (Other)
  Sender: CHEPLAPHARM
  Company Number: US-ROCHE-10000138479

PATIENT
  Age: 66 Year
  Sex: Female

DRUGS (3)
  1. CAPECITABINE [Suspect]
     Active Substance: CAPECITABINE
     Indication: HER2 positive breast cancer
     Dates: start: 20250107
  2. CAPECITABINE [Suspect]
     Active Substance: CAPECITABINE
     Indication: HER2 positive breast cancer
     Route: 048
  3. TUKYSA [Suspect]
     Active Substance: TUCATINIB
     Indication: HER2 positive breast cancer
     Dosage: 2 EVERY 1 DAY?DAILY DOSE: 4 DOSAGE FORM
     Route: 048
     Dates: start: 20241002

REACTIONS (10)
  - Seizure [Unknown]
  - Dizziness [Unknown]
  - Musculoskeletal pain [Unknown]
  - Off label use [Unknown]
  - Brain neoplasm [Recovered/Resolved]
  - Metastases to lung [Not Recovered/Not Resolved]
  - Disease progression [Unknown]
  - Illness [Recovered/Resolved]
  - Cough [Unknown]
  - Gastrooesophageal reflux disease [Unknown]

NARRATIVE: CASE EVENT DATE: 20241002
